FAERS Safety Report 7749662-1 (Version None)
Quarter: 2011Q3

REPORT INFORMATION
  Report Type: 
  Country: None (occurrence: None)
  Receive Date: 20110914
  Receipt Date: 20110912
  Transmission Date: 20111222
  Serious: Yes (Hospitalization, Disabling, Other)
  Sender: FDA-Public Use
  Company Number: US-ROCHE-657270

PATIENT
  Sex: Male
  Weight: 72.6 kg

DRUGS (4)
  1. AMNESTEEM [Suspect]
     Indication: ACNE
     Route: 065
     Dates: start: 20030401, end: 20030501
  2. NASACORT [Concomitant]
  3. ACCUTANE [Suspect]
     Indication: ACNE
     Route: 048
     Dates: start: 19930101, end: 20030101
  4. RHINOCORT [Concomitant]

REACTIONS (21)
  - BLOOD TRIGLYCERIDES INCREASED [None]
  - EPISTAXIS [None]
  - MUSCULOSKELETAL DISORDER [None]
  - CHRONIC SINUSITIS [None]
  - RHINITIS ALLERGIC [None]
  - LYMPHADENOPATHY [None]
  - INFLAMMATORY BOWEL DISEASE [None]
  - NASAL POLYPS [None]
  - CROHN'S DISEASE [None]
  - HYPERLIPIDAEMIA [None]
  - TONSILLAR HYPERTROPHY [None]
  - OSTEOARTHRITIS [None]
  - PHARYNGEAL OEDEMA [None]
  - HYPERTROPHIC CARDIOMYOPATHY [None]
  - SUICIDAL IDEATION [None]
  - UPPER-AIRWAY COUGH SYNDROME [None]
  - DEPRESSION [None]
  - CHEST PAIN [None]
  - BACK PAIN [None]
  - HYPERHIDROSIS [None]
  - COLITIS ULCERATIVE [None]
